FAERS Safety Report 7203764-7 (Version None)
Quarter: 2010Q4

REPORT INFORMATION
  Report Type: 
  Country: None (occurrence: None)
  Receive Date: 20101230
  Receipt Date: 20101224
  Transmission Date: 20110411
  Serious: Yes (Death, Life-Threatening)
  Sender: FDA-Public Use
  Company Number: PHHY2010JP88136

PATIENT
  Age: 85 Year
  Sex: Male

DRUGS (14)
  1. EXFORGE [Suspect]
     Dosage: ONE DOSAGE FORM DAILY
     Dates: start: 20101123, end: 20101216
  2. NORVASC [Concomitant]
     Dosage: 2.5 MG DAILY
  3. TANATRIL [Concomitant]
     Dosage: 5 MG DAILY
  4. LANIRAPID [Concomitant]
     Dosage: 0.05 MG DAILY
  5. ARTIST [Concomitant]
     Dosage: 2.5 MG DAILY
  6. LASIX [Concomitant]
     Dosage: 20 MG DAILY
  7. SIGMART [Concomitant]
     Dosage: 20 MG DAILY
  8. ITOROL [Concomitant]
     Dosage: 40 MG DAILY
  9. NITRODERM [Concomitant]
     Dosage: ONE SHEET
  10. FUROSEMIDE [Concomitant]
     Dosage: 60 MG DAILY (40 MG-20 MG-0 MG)
  11. NICORANDIL [Concomitant]
     Dosage: 3T DAILY
  12. AMLODIPINE [Concomitant]
     Dosage: 2.5 MG DAILY
  13. RENIVEZE [Concomitant]
     Dosage: 5 MG DAILY
  14. KREMEZIN [Concomitant]
     Dosage: 6 CAPSULES DAILY IN 3 DIVIDED DOSES

REACTIONS (5)
  - BLOOD CREATINE INCREASED [None]
  - BLOOD UREA INCREASED [None]
  - PULMONARY CONGESTION [None]
  - RENAL FAILURE CHRONIC [None]
  - VENTRICULAR FIBRILLATION [None]
